FAERS Safety Report 8845271 (Version 1)
Quarter: 2012Q4

REPORT INFORMATION
  Report Type: Spontaneous
  Country: US (occurrence: None)
  Receive Date: 20121016
  Receipt Date: 20121016
  Transmission Date: 20130627
  Serious: No
  Sender: FDA-Public Use
  Company Number: None

PATIENT
  Age: 65 Year
  Sex: Male
  Weight: 106.2 kg

DRUGS (1)
  1. TELAPREVIR [Suspect]

REACTIONS (5)
  - Stevens-Johnson syndrome [None]
  - Dermatitis exfoliative [None]
  - Pruritus [None]
  - Pain [None]
  - Rash [None]
